FAERS Safety Report 7988468-5 (Version None)
Quarter: 2011Q4

REPORT INFORMATION
  Report Type: 
  Country: None (occurrence: None)
  Receive Date: 20111216
  Receipt Date: 20111212
  Transmission Date: 20120403
  Serious: Yes (Other)
  Sender: FDA-Public Use
  Company Number: US-PFIZER INC-2011303287

PATIENT
  Age: 82 Year
  Sex: Male

DRUGS (1)
  1. RAPAMUNE [Suspect]
     Dosage: EVERY 4 HOURS FOR 3 WEEKS

REACTIONS (4)
  - TOXIC ENCEPHALOPATHY [None]
  - MYOCARDIAL INFARCTION [None]
  - ACCIDENTAL OVERDOSE [None]
  - DEMENTIA [None]
